FAERS Safety Report 4866102-0 (Version None)
Quarter: 2005Q4

REPORT INFORMATION
  Report Type: 
  Country: None (occurrence: None)
  Receive Date: 20051221
  Receipt Date: 20051209
  Transmission Date: 20060501
  Serious: Yes (Hospitalization, Other)
  Sender: FDA-Public Use
  Company Number: HQWYE985113DEC05

PATIENT
  Age: 49 Year
  Sex: Female

DRUGS (3)
  1. OSTELUC                 (ETODOLAC) [Suspect]
     Indication: DENTAL OPERATION
     Dosage: 200 MG 1X PER 1 DAY ORAL
     Route: 048
     Dates: start: 20040731, end: 20040801
  2. AZITHROMYCIN [Suspect]
     Dosage: 50 MG 1X PER 1 DAY ORAL
     Route: 048
     Dates: start: 20040731
  3. APLACE (TROXIPIDE) [Concomitant]

REACTIONS (1)
  - DRUG ERUPTION [None]
